FAERS Safety Report 7365886-X (Version None)
Quarter: 2011Q1

REPORT INFORMATION
  Report Type: 
  Country: None (occurrence: None)
  Receive Date: 20110322
  Receipt Date: 20110310
  Transmission Date: 20110831
  Serious: Yes (Death)
  Sender: FDA-Public Use
  Company Number: FR-ASTELLAS-2011EU001209

PATIENT
  Age: 78 Year
  Sex: Male
  Weight: 59 kg

DRUGS (2)
  1. MICAFUNGIN INJECTION [Suspect]
     Indication: CANDIDIASIS
     Dosage: 100 MG, UNKNOWN/D
     Route: 042
     Dates: start: 20101110, end: 20101118
  2. FLUCONAZOLE [Concomitant]
     Indication: ANTIFUNGAL TREATMENT
     Dosage: 400 MG, UNKNOWN/D
     Route: 065
     Dates: start: 20101105, end: 20101107

REACTIONS (2)
  - MULTI-ORGAN FAILURE [None]
  - INFECTION [None]
